FAERS Safety Report 12084758 (Version 1)
Quarter: 2016Q1

REPORT INFORMATION
  Report Type: Spontaneous
  Country: US (occurrence: US)
  Receive Date: 20160217
  Receipt Date: 20160217
  Transmission Date: 20160526
  Serious: Yes (Death)
  Sender: FDA-Public Use
  Company Number: US-ASTRAZENECA-2016SE15474

PATIENT
  Age: 7 Month
  Sex: Female

DRUGS (1)
  1. SYNAGIS [Suspect]
     Active Substance: PALIVIZUMAB
     Indication: RESPIRATORY TRACT INFECTION
     Route: 030
     Dates: start: 20151218, end: 20160118

REACTIONS (2)
  - Chronic respiratory disease [Unknown]
  - Death [Fatal]

NARRATIVE: CASE EVENT DATE: 201512
